FAERS Safety Report 10392928 (Version 2)
Quarter: 2016Q4

REPORT INFORMATION
  Report Type: Spontaneous
  Country: JP (occurrence: JP)
  Receive Date: 20140819
  Receipt Date: 20161129
  Transmission Date: 20170206
  Serious: Yes (Death)
  Sender: FDA-Public Use
  Company Number: JP-MALLINCKRODT-T201403127

PATIENT
  Age: 41 Year
  Sex: Female
  Weight: 50 kg

DRUGS (14)
  1. MUCOSTA [Concomitant]
     Active Substance: REBAMIPIDE
     Dosage: 300 MG, UNK
     Route: 048
     Dates: start: 20130129, end: 20131202
  2. METHADONE [Suspect]
     Active Substance: METHADONE HYDROCHLORIDE
     Indication: CANCER PAIN
     Dosage: 5 MG (15 MG DAILY DOSE)
     Route: 048
     Dates: start: 20131008, end: 20131027
  3. METHADONE [Suspect]
     Active Substance: METHADONE HYDROCHLORIDE
     Dosage: 10 MG (30 MG DAILY DOSE)
     Route: 048
     Dates: start: 20131219, end: 20140212
  4. METHADONE [Suspect]
     Active Substance: METHADONE HYDROCHLORIDE
     Dosage: 20 MG (40 MG DAILY DOSE)
     Route: 048
     Dates: start: 20140213, end: 20140223
  5. METHADONE [Suspect]
     Active Substance: METHADONE HYDROCHLORIDE
     Dosage: 5 MG (10 MG DAILY DOSE)
     Route: 048
     Dates: start: 20131028, end: 20131118
  6. MAGMITT [Concomitant]
     Active Substance: MAGNESIUM OXIDE
     Dosage: 990 MG, UNK
     Route: 048
     Dates: start: 20130404, end: 20140614
  7. PURSENNID [Concomitant]
     Active Substance: SENNOSIDES A AND B
     Dosage: 24 MG, UNK
     Route: 048
     Dates: start: 20130404, end: 20140703
  8. METHADONE [Suspect]
     Active Substance: METHADONE HYDROCHLORIDE
     Dosage: 20 MG (60 MG DAILY DOSE)
     Route: 048
     Dates: start: 20140326, end: 20140409
  9. LOXOPROFEN [Concomitant]
     Active Substance: LOXOPROFEN
     Dosage: 180 MG, UNK
     Route: 048
     Dates: start: 20130129, end: 20140108
  10. METHADONE [Suspect]
     Active Substance: METHADONE HYDROCHLORIDE
     Dosage: 40 MG (80 MG DAILY DOSE)
     Route: 048
     Dates: start: 20140508, end: 20140723
  11. METHADONE [Suspect]
     Active Substance: METHADONE HYDROCHLORIDE
     Dosage: 5 MG (15 MG DAILY DOSE)
     Route: 048
     Dates: start: 20131119, end: 20131218
  12. METHADONE [Suspect]
     Active Substance: METHADONE HYDROCHLORIDE
     Dosage: 35 MG (70 MG DAILY DOSE)
     Route: 048
     Dates: start: 20140410, end: 20140507
  13. OXINORM [Concomitant]
     Active Substance: OXYCODONE HYDROCHLORIDE
     Dosage: 5 - 10 MG, PRN
     Route: 048
     Dates: start: 20131007, end: 20131207
  14. METHADONE [Suspect]
     Active Substance: METHADONE HYDROCHLORIDE
     Dosage: 25 MG (50 MG DAILY DOSE)
     Route: 048
     Dates: start: 20140224, end: 20140325

REACTIONS (2)
  - Uterine cancer [Fatal]
  - Somnolence [Recovering/Resolving]

NARRATIVE: CASE EVENT DATE: 201310
